FAERS Safety Report 15490068 (Version 2)
Quarter: 2018Q4

REPORT INFORMATION
  Report Type: Spontaneous
  Country: FR (occurrence: FR)
  Receive Date: 20181011
  Receipt Date: 20181121
  Transmission Date: 20190205
  Serious: Yes (Hospitalization, Other)
  Sender: FDA-Public Use
  Company Number: FR-GLAXOSMITHKLINE-FR2018GSK181959

PATIENT
  Age: 32 Year
  Sex: Female
  Weight: 58 kg

DRUGS (4)
  1. LAMICTAL [Suspect]
     Active Substance: LAMOTRIGINE
     Indication: EPILEPSY
     Dosage: 100 MG, BID
     Route: 048
  2. EPITOMAX [Concomitant]
     Active Substance: TOPIRAMATE
     Indication: PRODUCT USED FOR UNKNOWN INDICATION
     Dosage: 200 MG, BID
     Route: 048
  3. TOLEXINE [Concomitant]
     Active Substance: DOXYCYCLINE
     Indication: PRODUCT USED FOR UNKNOWN INDICATION
     Dosage: UNK, QD
  4. DEPAKINE CHRONO [Interacting]
     Active Substance: VALPROATE SODIUM
     Indication: PRODUCT USED FOR UNKNOWN INDICATION
     Dosage: 1500 MG, QD
     Route: 048

REACTIONS (20)
  - Urine abnormality [Recovering/Resolving]
  - Anticonvulsant drug level increased [Unknown]
  - Drug interaction [Unknown]
  - Dyskinesia [Recovered/Resolved]
  - Stubbornness [Recovering/Resolving]
  - Head injury [Unknown]
  - Fall [Recovering/Resolving]
  - Apathy [Unknown]
  - Aggression [Recovering/Resolving]
  - Insomnia [Unknown]
  - Tremor [Recovering/Resolving]
  - Fatigue [Unknown]
  - Ataxia [Recovering/Resolving]
  - Anxiety [Recovering/Resolving]
  - Malaise [Unknown]
  - Thrombocytopenia [Unknown]
  - Neutropenia [Unknown]
  - Epilepsy [Recovering/Resolving]
  - Loss of consciousness [Unknown]
  - Obstruction [Unknown]

NARRATIVE: CASE EVENT DATE: 2018
